FAERS Safety Report 15804762 (Version 2)
Quarter: 2019Q1

REPORT INFORMATION
  Report Type: Spontaneous
  Country: US (occurrence: US)
  Receive Date: 20190109
  Receipt Date: 20190207
  Transmission Date: 20190417
  Serious: No
  Sender: FDA-Public Use
  Company Number: US-ASTRAZENECA-2018SF70586

PATIENT
  Age: 24709 Day
  Sex: Male

DRUGS (1)
  1. PULMICORT FLEXHALER [Suspect]
     Active Substance: BUDESONIDE
     Indication: ASTHMA
     Dosage: 180 MCG INHALER 2 INHALATIONS TWICE A DAY
     Route: 055
     Dates: end: 20181101

REACTIONS (4)
  - Nasopharyngitis [Unknown]
  - Therapy cessation [Recovered/Resolved]
  - Device defective [Unknown]
  - Intentional device misuse [Recovered/Resolved]

NARRATIVE: CASE EVENT DATE: 20181017
